FAERS Safety Report 14782933 (Version 1)
Quarter: 2018Q2

REPORT INFORMATION
  Report Type: Spontaneous
  Country: US (occurrence: US)
  Receive Date: 20180420
  Receipt Date: 20180420
  Transmission Date: 20180711
  Serious: No
  Sender: FDA-Public Use
  Company Number: US-ASTRAZENECA-2018SE46595

PATIENT
  Age: 58 Year
  Sex: Male

DRUGS (1)
  1. SEROQUEL [Suspect]
     Active Substance: QUETIAPINE FUMARATE
     Indication: INSOMNIA
     Route: 048

REACTIONS (6)
  - Tinnitus [Unknown]
  - Blood glucose increased [Unknown]
  - Amnesia [Unknown]
  - Blood pressure increased [Unknown]
  - Blood cholesterol increased [Unknown]
  - Heart rate increased [Unknown]
